FAERS Safety Report 4377267-1 (Version None)
Quarter: 2004Q2

REPORT INFORMATION
  Report Type: 
  Country: None (occurrence: None)
  Receive Date: 20040614
  Receipt Date: 20040614
  Transmission Date: 20050107
  Serious: Yes (Other)
  Sender: FDA-Public Use
  Company Number: None

PATIENT
  Age: 28 Year
  Sex: Female
  Weight: 56.6996 kg

DRUGS (1)
  1. ADVAIR DISKUS 250/50 [Suspect]
     Indication: ASTHMA
     Dosage: 1 INHALA 2X A DAY
     Route: 055
     Dates: start: 20030714, end: 20030721

REACTIONS (4)
  - FLUID INTAKE REDUCED [None]
  - GINGIVAL DISORDER [None]
  - HYPOAESTHESIA ORAL [None]
  - SENSORY DISTURBANCE [None]
